FAERS Safety Report 18410203 (Version 1)
Quarter: 2020Q4

REPORT INFORMATION
  Report Type: Spontaneous
  Country: US (occurrence: US)
  Receive Date: 20201021
  Receipt Date: 20201021
  Transmission Date: 20210114
  Serious: No
  Sender: FDA-Public Use
  Company Number: None

PATIENT
  Age: 51 Year
  Sex: Male
  Weight: 87.75 kg

DRUGS (7)
  1. PRILOSEC [Concomitant]
     Active Substance: OMEPRAZOLE MAGNESIUM
  2. PAXIL [Concomitant]
     Active Substance: PAROXETINE HYDROCHLORIDE
  3. PROBIOTIC [Concomitant]
     Active Substance: PROBIOTICS NOS
  4. MULTIVITAMIN [Concomitant]
     Active Substance: VITAMINS
  5. PSYLLIUM HUSK. [Concomitant]
     Active Substance: PSYLLIUM HUSK
  6. FISH OIL [Concomitant]
     Active Substance: FISH OIL
  7. TRAMADOL. [Suspect]
     Active Substance: TRAMADOL
     Indication: FIBROMYALGIA
     Dosage: ?          QUANTITY:1 TABLET(S);?
     Route: 048

REACTIONS (4)
  - Hypoaesthesia [None]
  - Dysphagia [None]
  - Gastrointestinal hypomotility [None]
  - Dyspnoea [None]

NARRATIVE: CASE EVENT DATE: 20180915
